FAERS Safety Report 19585773 (Version 3)
Quarter: 2021Q3

REPORT INFORMATION
  Report Type: Spontaneous
  Country: US (occurrence: US)
  Receive Date: 20210721
  Receipt Date: 20210803
  Transmission Date: 20211014
  Serious: Yes (Other)
  Sender: FDA-Public Use
  Company Number: US-UNITED THERAPEUTICS-UNT-2021-013331

PATIENT
  Age: 78 Year
  Sex: Male
  Weight: 96.15 kg

DRUGS (2)
  1. TYVASO [Suspect]
     Active Substance: TREPROSTINIL
     Indication: PULMONARY ARTERIAL HYPERTENSION
     Dosage: UNK
     Dates: start: 20210701
  2. TYVASO [Suspect]
     Active Substance: TREPROSTINIL
     Dosage: 18?54 ?G, QID
     Dates: start: 202107

REACTIONS (8)
  - Feeling cold [Unknown]
  - Balance disorder [Unknown]
  - Urinary tract infection [Unknown]
  - Asthenia [Unknown]
  - Pyrexia [Unknown]
  - Gastrointestinal haemorrhage [Recovering/Resolving]
  - Cough [Unknown]
  - Pain [Unknown]

NARRATIVE: CASE EVENT DATE: 202107
